FAERS Safety Report 17105931 (Version 1)
Quarter: 2019Q4

REPORT INFORMATION
  Report Type: Spontaneous
  Country: US (occurrence: US)
  Receive Date: 20191203
  Receipt Date: 20191203
  Transmission Date: 20200122
  Serious: Yes (Other)
  Sender: FDA-Public Use
  Company Number: US-PFIZER INC-2019516433

PATIENT
  Age: 71 Year
  Sex: Female
  Weight: 120 kg

DRUGS (2)
  1. GABAPENTIN. [Suspect]
     Active Substance: GABAPENTIN
     Indication: BACK PAIN
     Dosage: 600 MG, 1X/DAY (TAKES 2 AT NIGHT)
  2. GABAPENTIN. [Suspect]
     Active Substance: GABAPENTIN
     Indication: DIABETIC NEPHROPATHY

REACTIONS (9)
  - Drug ineffective for unapproved indication [Unknown]
  - Intentional product use issue [Unknown]
  - Poor quality product administered [Unknown]
  - Somnolence [Unknown]
  - Drug hypersensitivity [Unknown]
  - Sciatica [Recovering/Resolving]
  - Pancreatic carcinoma metastatic [Recovering/Resolving]
  - Off label use [Unknown]
  - Lung disorder [Not Recovered/Not Resolved]

NARRATIVE: CASE EVENT DATE: 2019
